FAERS Safety Report 8937131 (Version 1)
Quarter: 2012Q4

REPORT INFORMATION
  Report Type: Spontaneous
  Country: US (occurrence: None)
  Receive Date: 20121128
  Receipt Date: 20121128
  Transmission Date: 20130627
  Serious: No
  Sender: FDA-Public Use
  Company Number: None

PATIENT
  Age: 62 Year
  Sex: Female
  Weight: 74.39 kg

DRUGS (1)
  1. KLONOPIN [Suspect]
     Route: 048

REACTIONS (12)
  - Asthenia [None]
  - Memory impairment [None]
  - Fatigue [None]
  - Muscular weakness [None]
  - Balance disorder [None]
  - Dry mouth [None]
  - Rhinorrhoea [None]
  - Decreased appetite [None]
  - Diarrhoea [None]
  - Constipation [None]
  - Weight abnormal [None]
  - Mobility decreased [None]
